FAERS Safety Report 7889512-6 (Version None)
Quarter: 2011Q4

REPORT INFORMATION
  Report Type: 
  Country: None (occurrence: None)
  Receive Date: 20111103
  Receipt Date: 20111027
  Transmission Date: 20120403
  Serious: Yes (Death, Hospitalization, Other)
  Sender: FDA-Public Use
  Company Number: MX-SANOFI-AVENTIS-2011SA071083

PATIENT
  Age: 72 Year
  Sex: Male

DRUGS (5)
  1. SELOPRES ZOK [Concomitant]
     Route: 048
     Dates: start: 20100101, end: 20111017
  2. GLYBURIDE [Concomitant]
     Indication: TYPE 2 DIABETES MELLITUS
     Route: 048
     Dates: start: 20100101, end: 20111017
  3. ASPIRIN [Concomitant]
     Indication: THROMBOSIS PROPHYLAXIS
     Route: 048
     Dates: start: 20020101, end: 20111017
  4. ATENOLOL [Concomitant]
     Route: 065
     Dates: start: 20100101, end: 20111017
  5. CLOPIDOGREL BISULFATE [Suspect]
     Indication: THROMBOSIS PROPHYLAXIS
     Route: 048
     Dates: start: 20020911, end: 20111017

REACTIONS (4)
  - MYOCARDIAL INFARCTION [None]
  - HAEMATURIA [None]
  - HAEMOGLOBIN DECREASED [None]
  - CARDIO-RESPIRATORY ARREST [None]
